FAERS Safety Report 17451719 (Version 2)
Quarter: 2020Q1

REPORT INFORMATION
  Report Type: Spontaneous
  Country: US (occurrence: US)
  Receive Date: 20200224
  Receipt Date: 20200226
  Transmission Date: 20200409
  Serious: No
  Sender: FDA-Public Use
  Company Number: US-SA-2020SA044847

PATIENT
  Age: 24 Year
  Sex: Female

DRUGS (6)
  1. MILI [ETHINYLESTRADIOL;NORGESTIMATE] [Concomitant]
  2. AMFETAMINE;DEXAMFETAMINE [Concomitant]
  3. AMFETAMINE;DEXAMFETAMINE [Concomitant]
  4. ESTARYLLA [Concomitant]
     Active Substance: ETHINYL ESTRADIOL\NORGESTIMATE
  5. DUPIXENT [Suspect]
     Active Substance: DUPILUMAB
     Indication: DERMATITIS ALLERGIC
     Dosage: 300 MG, QOW
     Route: 058
     Dates: start: 20191114, end: 20200212
  6. ESCITALOPRAM [Concomitant]
     Active Substance: ESCITALOPRAM OXALATE

REACTIONS (3)
  - Product dose omission [Recovering/Resolving]
  - Injection site pain [Not Recovered/Not Resolved]
  - Eczema [Recovering/Resolving]

NARRATIVE: CASE EVENT DATE: 20200122
